FAERS Safety Report 22395468 (Version 1)
Quarter: 2023Q2

REPORT INFORMATION
  Report Type: Spontaneous
  Country: CA (occurrence: CA)
  Receive Date: 20230601
  Receipt Date: 20230601
  Transmission Date: 20230722
  Serious: Yes (Other)
  Sender: FDA-Public Use
  Company Number: CA-BAUSCH-BL-2023-008057

PATIENT
  Sex: Male

DRUGS (1)
  1. JUBLIA [Suspect]
     Active Substance: EFINACONAZOLE
     Indication: Onychomycosis
     Route: 065

REACTIONS (5)
  - Application site pain [Unknown]
  - Erythema [Unknown]
  - Pain in extremity [Unknown]
  - Peripheral swelling [Unknown]
  - Burns second degree [Unknown]
